FAERS Safety Report 7180083-9 (Version None)
Quarter: 2010Q4

REPORT INFORMATION
  Report Type: 
  Country: None (occurrence: None)
  Receive Date: 20101221
  Receipt Date: 20101207
  Transmission Date: 20110411
  Serious: Yes (Other)
  Sender: FDA-Public Use
  Company Number: US-JNJFOC-20101204499

PATIENT
  Sex: Female

DRUGS (6)
  1. REMICADE [Suspect]
     Indication: COLITIS ULCERATIVE
     Route: 042
  2. REMICADE [Suspect]
     Route: 042
  3. REMICADE [Suspect]
     Route: 042
  4. CIMZIA [Suspect]
     Indication: COLITIS ULCERATIVE
  5. METOCLOPRAMIDE [Suspect]
     Indication: ILL-DEFINED DISORDER
  6. STEROIDS NOS [Concomitant]
     Indication: PREMEDICATION

REACTIONS (4)
  - ENCEPHALITIS [None]
  - FATIGUE [None]
  - NERVOUS SYSTEM DISORDER [None]
  - SERUM SICKNESS [None]
